FAERS Safety Report 13858996 (Version 2)
Quarter: 2017Q3

REPORT INFORMATION
  Report Type: Spontaneous
  Country: DE (occurrence: DE)
  Receive Date: 20170811
  Receipt Date: 20170912
  Transmission Date: 20171127
  Serious: Yes (Hospitalization)
  Sender: FDA-Public Use
  Company Number: DE-AMGEN-DEUSP2017119368

PATIENT
  Sex: Female

DRUGS (2)
  1. PROLIA [Suspect]
     Active Substance: DENOSUMAB
     Indication: OSTEOPOROSIS
     Dosage: 60 MG
     Route: 065
     Dates: start: 201208
  2. CONCOR [Concomitant]
     Active Substance: BISOPROLOL FUMARATE
     Indication: EXTRASYSTOLES
     Dosage: 1.25 UNK, UNK

REACTIONS (4)
  - Injection site pruritus [Unknown]
  - Injection site erythema [Unknown]
  - Mucosal dryness [Not Recovered/Not Resolved]
  - Pruritus [Not Recovered/Not Resolved]

NARRATIVE: CASE EVENT DATE: 201208
